FAERS Safety Report 6757850-6 (Version None)
Quarter: 2010Q2

REPORT INFORMATION
  Report Type: 
  Country: None (occurrence: None)
  Receive Date: 20100607
  Receipt Date: 20100526
  Transmission Date: 20101027
  Serious: Yes (Hospitalization, Other)
  Sender: FDA-Public Use
  Company Number: PHHY2010JP20882

PATIENT
  Sex: Male
  Weight: 59 kg

DRUGS (4)
  1. TEGRETOL [Suspect]
     Indication: DEPRESSION
     Dosage: 200 MG DAILY
     Route: 048
     Dates: start: 20040109, end: 20070522
  2. SERENACE [Interacting]
     Dosage: UNK
     Route: 048
     Dates: end: 20070522
  3. SEROQUEL [Interacting]
     Dosage: 25 MG DAILY
     Route: 048
     Dates: start: 20070518, end: 20070519
  4. SPIRIVA [Concomitant]
     Dosage: 1 DF
     Dates: start: 20060706, end: 20070522

REACTIONS (17)
  - ALANINE AMINOTRANSFERASE INCREASED [None]
  - BLOOD ALKALINE PHOSPHATASE INCREASED [None]
  - BLOOD CREATINE PHOSPHOKINASE DECREASED [None]
  - BLOOD GLUCOSE INCREASED [None]
  - BLOOD LACTATE DEHYDROGENASE INCREASED [None]
  - BLOOD UREA INCREASED [None]
  - DEMENTIA WITH LEWY BODIES [None]
  - DRUG INTERACTION [None]
  - MUSCLE RIGIDITY [None]
  - NEUROLEPTIC MALIGNANT SYNDROME [None]
  - NEUTROPHIL COUNT DECREASED [None]
  - PLATELET COUNT DECREASED [None]
  - PNEUMONIA [None]
  - PULMONARY EMBOLISM [None]
  - PYREXIA [None]
  - RESPIRATORY DISORDER [None]
  - WITHDRAWAL SYNDROME [None]
